FAERS Safety Report 12411553 (Version 1)
Quarter: 2016Q2

REPORT INFORMATION
  Report Type: Spontaneous
  Country: AU (occurrence: AU)
  Receive Date: 20160527
  Receipt Date: 20160527
  Transmission Date: 20160815
  Serious: Yes (Other)
  Sender: FDA-Public Use
  Company Number: AU-GLAXOSMITHKLINE-AU2016GSK071176

PATIENT
  Age: 80 Year
  Sex: Female

DRUGS (11)
  1. FLUTICASONE PROPIONATE+SALMETEROL XINAFOATE [Suspect]
     Active Substance: FLUTICASONE PROPIONATE\SALMETEROL XINAFOATE
     Indication: ASTHMA
  2. TELMISARTAN. [Concomitant]
     Active Substance: TELMISARTAN
     Indication: BLOOD PRESSURE MEASUREMENT
     Dosage: UNK
     Route: 065
  3. LERCANIDIPINE [Concomitant]
     Active Substance: LERCANIDIPINE
     Indication: HYPERTENSION
     Dosage: UNK
     Route: 065
  4. ASPIRIN. [Concomitant]
     Active Substance: ASPIRIN
     Indication: PRODUCT USED FOR UNKNOWN INDICATION
     Dosage: UNK
     Route: 065
  5. SALBUTAMOL [Concomitant]
     Active Substance: ALBUTEROL
     Indication: ASTHMA
     Dosage: UNK
     Route: 055
  6. BROMHEXINE [Concomitant]
     Active Substance: BROMHEXINE
     Indication: COUGH
     Dosage: UNK
     Route: 065
  7. FLUTICASONE PROPIONATE+SALMETEROL XINAFOATE [Suspect]
     Active Substance: FLUTICASONE PROPIONATE\SALMETEROL XINAFOATE
     Indication: CHRONIC OBSTRUCTIVE PULMONARY DISEASE
     Dosage: UNK
     Route: 065
  8. TIOTROPIUM BROMIDE [Concomitant]
     Active Substance: TIOTROPIUM BROMIDE
     Indication: INHALATION THERAPY
     Dosage: UNK
     Route: 055
  9. FRUSEMIDE [Concomitant]
     Active Substance: FUROSEMIDE
     Indication: DIURETIC THERAPY
     Dosage: UNK
     Route: 065
  10. OXAZEPAM. [Concomitant]
     Active Substance: OXAZEPAM
     Indication: ANXIETY
     Dosage: UNK
     Route: 065
  11. AMITRIPTYLINE [Concomitant]
     Active Substance: AMITRIPTYLINE
     Indication: PRODUCT USED FOR UNKNOWN INDICATION
     Route: 065

REACTIONS (24)
  - Eosinophil count increased [Unknown]
  - Laryngeal erythema [Unknown]
  - C-reactive protein increased [Unknown]
  - Dysphonia [Unknown]
  - Speech disorder [Unknown]
  - Inflammation [Unknown]
  - Mucosal inflammation [Unknown]
  - Palmar erythema [Unknown]
  - Rhinitis [Unknown]
  - Nausea [Unknown]
  - Dyspnoea [Unknown]
  - Bronchomalacia [Unknown]
  - Immunosuppression [Unknown]
  - Dizziness [Unknown]
  - Laryngeal obstruction [Unknown]
  - Bronchitis [Unknown]
  - Oedema [Unknown]
  - Sputum abnormal [Unknown]
  - Sputum purulent [Unknown]
  - Nasal polyps [Unknown]
  - Metaplasia [Unknown]
  - Pharyngeal oedema [Unknown]
  - Blood immunoglobulin M decreased [Unknown]
  - Weight decreased [Unknown]
